FAERS Safety Report 16714594 (Version 2)
Quarter: 2019Q4

REPORT INFORMATION
  Report Type: Report from Study
  Country: US (occurrence: US)
  Receive Date: 20190819
  Receipt Date: 20191122
  Transmission Date: 20200122
  Serious: Yes (Death, Other)
  Sender: FDA-Public Use
  Company Number: PHEH2019US034323

PATIENT
  Age: 52 Year
  Sex: Male

DRUGS (1)
  1. GILENYA [Suspect]
     Active Substance: FINGOLIMOD HYDROCHLORIDE
     Indication: PRODUCT USED FOR UNKNOWN INDICATION
     Route: 065

REACTIONS (29)
  - Subdural haematoma [Unknown]
  - Tachycardia [Unknown]
  - Obstructive airways disorder [Unknown]
  - Contusion [Unknown]
  - Epistaxis [Unknown]
  - Death [Fatal]
  - Jaw fracture [Unknown]
  - Hypotension [Unknown]
  - Body temperature increased [Unknown]
  - Discomfort [Unknown]
  - Hypertension [Unknown]
  - Cerebral haemorrhage [Unknown]
  - Injury [Unknown]
  - Dry skin [Unknown]
  - Skin laceration [Unknown]
  - Coma scale abnormal [Unknown]
  - Oxygen saturation decreased [Unknown]
  - Ecchymosis [Unknown]
  - Lung opacity [Unknown]
  - Subarachnoid haemorrhage [Unknown]
  - Heart rate increased [Unknown]
  - Skin warm [Unknown]
  - Subdural haemorrhage [Unknown]
  - Mouth haemorrhage [Unknown]
  - Leukocytosis [Unknown]
  - Wound [Unknown]
  - Eye swelling [Unknown]
  - Infection [Unknown]
  - Periorbital oedema [Unknown]

NARRATIVE: CASE EVENT DATE: 20190813
